FAERS Safety Report 7599648-5 (Version None)
Quarter: 2011Q2

REPORT INFORMATION
  Report Type: 
  Country: None (occurrence: None)
  Receive Date: 20110629
  Receipt Date: 20110620
  Transmission Date: 20111010
  Serious: Yes (Hospitalization)
  Sender: FDA-Public Use
  Company Number: 1000021634

PATIENT
  Age: 78 Year
  Sex: Female

DRUGS (8)
  1. MEMANTINE HYDROCHLORIDE [Suspect]
     Indication: DEMENTIA
     Dosage: 20 MG (20 MG,1 IN 1 D),ORAL
     Route: 048
     Dates: start: 20100115, end: 20110502
  2. SEACOR (OMEGA-3 TRIGLYCERIDES) (OMEGA-3 TRIGLYCERIDES) [Concomitant]
  3. REMERON (MIRTAZAPINE) (TABLETS) (MIRTAZAPINE) [Concomitant]
  4. LANSOX (LANSOPRAZOLE) (TABLETS) (LANSOPRAZOLE) [Concomitant]
  5. CRESTOR (ROSUVASTATIN) (TABLETS) (ROSUVASTATIN) [Concomitant]
  6. LEXOTAN (BROMAZEPAM) (SOLUTION) (BROMAZEPAM) [Concomitant]
  7. CARDIRENE (ACETYLSALICYLATE LYSINE) (ACETYLSALICYLATE LYSINE) [Concomitant]
  8. ENAPREN (ENALAPRIL MALEATE) (TABLETS) (ENALAPRIL MALEATE) [Concomitant]

REACTIONS (1)
  - EPILEPSY [None]
